FAERS Safety Report 4731384-2 (Version None)
Quarter: 2005Q3

REPORT INFORMATION
  Report Type: 
  Country: None (occurrence: None)
  Receive Date: 20050801
  Receipt Date: 20050714
  Transmission Date: 20060218
  Serious: Yes (Other)
  Sender: FDA-Public Use
  Company Number: TRP_0176_2005

PATIENT
  Age: 46 Year
  Sex: Female

DRUGS (6)
  1. RIBASPHERE [Suspect]
     Dosage: DF, PO
     Route: 048
     Dates: start: 20041001, end: 20040101
  2. RIBASPHERE [Suspect]
     Dosage: DF, PO
     Route: 048
     Dates: start: 20041201, end: 20050301
  3. PEGASYS [Suspect]
     Dosage: DF, SC
     Route: 058
     Dates: start: 20041001, end: 20040101
  4. PEGASYS [Suspect]
     Dosage: DF
     Dates: start: 20041201, end: 20050301
  5. RIBASPHERE [Suspect]
     Dosage: DF, PO
     Route: 048
     Dates: start: 20050707
  6. PEGASYS [Suspect]
     Dosage: DF, SC
     Route: 058
     Dates: start: 20050707

REACTIONS (2)
  - ALOPECIA [None]
  - GRAND MAL CONVULSION [None]
